FAERS Safety Report 4311870-X (Version None)
Quarter: 2004Q1

REPORT INFORMATION
  Report Type: 
  Country: None (occurrence: None)
  Receive Date: 20040302
  Receipt Date: 20040104
  Transmission Date: 20041129
  Serious: No
  Sender: FDA-Public Use
  Company Number: 200410492BWH

PATIENT
  Age: 73 Year
  Sex: Male

DRUGS (5)
  1. LEVITRA [Suspect]
     Indication: ERECTILE DYSFUNCTION
     Dosage: 10 MG, TOTAL DAILY, ORAL
     Route: 048
     Dates: start: 20030101
  2. ALPHAGAN [Concomitant]
  3. XALATAN [Concomitant]
  4. LOPRESSOR [Concomitant]
  5. ZESTRIL [Concomitant]

REACTIONS (3)
  - EYE REDNESS [None]
  - FLUSHING [None]
  - INTRAOCULAR PRESSURE INCREASED [None]
